FAERS Safety Report 9672502 (Version 2)
Quarter: 2013Q4

REPORT INFORMATION
  Report Type: Spontaneous
  Country: AT (occurrence: AT)
  Receive Date: 20131106
  Receipt Date: 20131114
  Transmission Date: 20140711
  Serious: Yes (Death, Other)
  Sender: FDA-Public Use
  Company Number: AT-BAXTER-2013BAX042831

PATIENT
  Age: 42 Year
  Sex: Male

DRUGS (2)
  1. KIOVIG 100 MG/ML INFUSIONSL?SUNG [Suspect]
     Indication: OFF LABEL USE
     Route: 042
  2. KIOVIG 100 MG/ML INFUSIONSL?SUNG [Suspect]
     Indication: PARANEOPLASTIC ENCEPHALOMYELITIS

REACTIONS (4)
  - Cardio-respiratory arrest [Fatal]
  - Aspiration [Fatal]
  - General physical health deterioration [Not Recovered/Not Resolved]
  - Dysphagia [Not Recovered/Not Resolved]
